FAERS Safety Report 20015685 (Version 1)
Quarter: 2021Q4

REPORT INFORMATION
  Report Type: Spontaneous
  Country: US (occurrence: None)
  Receive Date: 20211101
  Receipt Date: 20211101
  Transmission Date: 20220303
  Serious: Yes (Hospitalization)
  Sender: FDA-Public Use
  Company Number: None

PATIENT
  Age: 70 Year
  Sex: Male
  Weight: 72.9 kg

DRUGS (1)
  1. RITUXIMAB-PVVR [Suspect]
     Active Substance: RITUXIMAB-PVVR
     Dosage: OTHER FREQUENCY : ONCE Q 28 DAYS X 6;?
     Route: 042
     Dates: start: 20211027, end: 20211027

REACTIONS (6)
  - Chills [None]
  - Tachycardia [None]
  - Pyrexia [None]
  - Dyspnoea [None]
  - Respiratory rate increased [None]
  - Infusion related reaction [None]

NARRATIVE: CASE EVENT DATE: 20211028
